FAERS Safety Report 6128896-6 (Version None)
Quarter: 2009Q1

REPORT INFORMATION
  Report Type: 
  Country: None (occurrence: None)
  Receive Date: 20090320
  Receipt Date: 20090311
  Transmission Date: 20090719
  Serious: Yes (Hospitalization)
  Sender: FDA-Public Use
  Company Number: TAP2009Q00217

PATIENT
  Age: 39 Year
  Sex: Male
  Weight: 81.81 kg

DRUGS (1)
  1. PREVPAC [Suspect]
     Indication: GASTROOESOPHAGEAL REFLUX DISEASE
     Dosage: 1 CARD, (1 CARD, 1 IN 1 D), PER ORAL
     Route: 048
     Dates: start: 20090101, end: 20090101

REACTIONS (2)
  - HYPERSENSITIVITY [None]
  - PULMONARY OEDEMA [None]
